FAERS Safety Report 5588368-4 (Version None)
Quarter: 2008Q1

REPORT INFORMATION
  Report Type: 
  Country: None (occurrence: None)
  Receive Date: 20080111
  Receipt Date: 20071011
  Transmission Date: 20080703
  Serious: No
  Sender: FDA-Public Use
  Company Number: A0687747A

PATIENT
  Age: 61 Year
  Sex: Female

DRUGS (2)
  1. TYKERB [Suspect]
     Indication: NEOPLASM
     Dosage: 5TAB PER DAY
     Route: 048
     Dates: start: 20070701
  2. XELODA [Concomitant]
     Indication: NEOPLASM
     Dosage: 4TAB PER DAY
     Route: 048
     Dates: start: 20070701

REACTIONS (6)
  - ABASIA [None]
  - BEDRIDDEN [None]
  - DIARRHOEA [None]
  - NAUSEA [None]
  - PAIN [None]
  - VOMITING [None]
